FAERS Safety Report 6123988-X (Version None)
Quarter: 2009Q1

REPORT INFORMATION
  Report Type: 
  Country: None (occurrence: None)
  Receive Date: 20090318
  Receipt Date: 20090318
  Transmission Date: 20090719
  Serious: Yes (Death)
  Sender: FDA-Public Use
  Company Number: None

PATIENT
  Age: 56 Year
  Sex: Male
  Weight: 124 kg

DRUGS (2)
  1. FLUDARABINE PHOSPHATE [Suspect]
     Dosage: 65MG X3 DAYS IV
     Route: 042
     Dates: start: 20090203, end: 20090205
  2. MELPHALAN [Suspect]
     Dosage: 150 MG X2 DAYS IV
     Route: 042
     Dates: start: 20090204, end: 20090205

REACTIONS (3)
  - HUMAN HERPESVIRUS 6 INFECTION [None]
  - PULMONARY HAEMORRHAGE [None]
  - TRANSPLANT FAILURE [None]
